FAERS Safety Report 9255378 (Version 1)
Quarter: 2013Q2

REPORT INFORMATION
  Report Type: Spontaneous
  Country: US (occurrence: None)
  Receive Date: 20130418
  Receipt Date: 20130418
  Transmission Date: 20140414
  Serious: No
  Sender: FDA-Public Use
  Company Number: 003_118_SJF

PATIENT
  Age: 33 Year
  Sex: Female
  Weight: 96.16 kg

DRUGS (1)
  1. CLINDAMYCIN - BENZOYL PEROXIDE [Suspect]
     Indication: ACNE
     Route: 061
     Dates: start: 20130326

REACTIONS (2)
  - Nephrolithiasis [None]
  - Ureteric obstruction [None]
